FAERS Safety Report 6740432-X (Version None)
Quarter: 2010Q2

REPORT INFORMATION
  Report Type: 
  Country: None (occurrence: None)
  Receive Date: 20100525
  Receipt Date: 20100514
  Transmission Date: 20101027
  Serious: Yes (Death, Other)
  Sender: FDA-Public Use
  Company Number: US-ELI_LILLY_AND_COMPANY-US201005004544

PATIENT
  Sex: Female
  Weight: 58.51 kg

DRUGS (10)
  1. FLUOXETINE HYDROCHLORIDE [Suspect]
     Dosage: 10 MG, DAILY (1/D)
     Route: 048
     Dates: start: 20100106
  2. INVESTIGATIONAL DRUG [Concomitant]
     Indication: ACUTE MYELOID LEUKAEMIA
     Dosage: 10 MG/KG, WEEKLY
     Route: 042
     Dates: start: 20100429, end: 20100429
  3. HYDROXYUREA [Concomitant]
     Indication: ACUTE MYELOID LEUKAEMIA
     Dosage: 1000 MG, 2 IN 1 DAY
     Route: 048
     Dates: start: 20100430
  4. SULFAMETHOXAZOLE AND TRIMETHOPRIM [Concomitant]
     Indication: WHITE BLOOD CELL COUNT INCREASED
     Dosage: 800 MG, 2/D
     Route: 048
     Dates: start: 20100427
  5. SULFAMETHOXAZOLE AND TRIMETHOPRIM [Concomitant]
     Dosage: 160 MG, 2/D
     Route: 048
     Dates: start: 20100427
  6. VALACYCLOVIR [Concomitant]
     Dosage: 500 MG, 1 IN 1 DAY
     Dates: start: 20100419
  7. POTASSIUM CHLORIDE [Concomitant]
     Dosage: 20 MEQ, DAILY (1/D)
     Route: 048
     Dates: start: 20100419
  8. PROCHLORPERAZINE MALEATE [Concomitant]
     Dosage: 10 MG, EVERY 8 HRS AS NEEDED
     Route: 048
     Dates: start: 20091117
  9. HYDROMORPHONE HYDROCHLORIDE [Concomitant]
     Dosage: 2 MG, EVERY 3 HRSAS NEEDED
     Route: 048
  10. POLYVINYL ALCOHOL [Concomitant]
     Dosage: 1 GTT, BOTH EYES AS NEEDED
     Route: 047

REACTIONS (17)
  - ASTHENIA [None]
  - BLOOD CREATINE PHOSPHOKINASE INCREASED [None]
  - BLOOD CREATINE PHOSPHOKINASE MB INCREASED [None]
  - BRAIN HERNIATION [None]
  - CEREBRAL HAEMORRHAGE [None]
  - CONFUSIONAL STATE [None]
  - DEPRESSED LEVEL OF CONSCIOUSNESS [None]
  - GASTROINTESTINAL VIRAL INFECTION [None]
  - HAEMOGLOBIN INCREASED [None]
  - LETHARGY [None]
  - NAUSEA [None]
  - PLATELET COUNT DECREASED [None]
  - SUBDURAL HAEMATOMA [None]
  - TROPONIN I INCREASED [None]
  - UNRESPONSIVE TO STIMULI [None]
  - VOMITING [None]
  - WHITE BLOOD CELL COUNT INCREASED [None]
